FAERS Safety Report 5460273-3 (Version None)
Quarter: 2007Q3

REPORT INFORMATION
  Report Type: 
  Country: None (occurrence: None)
  Receive Date: 20070919
  Receipt Date: 20070814
  Transmission Date: 20080115
  Serious: No
  Sender: FDA-Public Use
  Company Number: US-ASTRAZENECA-2007UW14796

PATIENT
  Age: 68 Year
  Sex: Female
  Weight: 72.6 kg

DRUGS (6)
  1. SEROQUEL [Suspect]
     Indication: BIPOLAR DISORDER
     Route: 048
     Dates: start: 20070613, end: 20070620
  2. CARDIAZEM [Concomitant]
  3. PRILOSEC [Concomitant]
     Route: 048
  4. CRESTOR [Concomitant]
     Route: 048
  5. ASMANEX TWISTHALER [Concomitant]
  6. KLONOPIN [Concomitant]
     Route: 048

REACTIONS (2)
  - FEELING HOT [None]
  - ILL-DEFINED DISORDER [None]
